FAERS Safety Report 16051910 (Version 1)
Quarter: 2019Q1

REPORT INFORMATION
  Report Type: Spontaneous
  Country: US (occurrence: US)
  Receive Date: 20190308
  Receipt Date: 20190308
  Transmission Date: 20190418
  Serious: Yes (Life-Threatening, Hospitalization)
  Sender: FDA-Public Use
  Company Number: US-PFIZER INC-2019102628

PATIENT
  Age: 32 Year
  Sex: Male

DRUGS (11)
  1. VINCRISTINE SULFATE. [Suspect]
     Active Substance: VINCRISTINE SULFATE
     Indication: HIGH GRADE B-CELL LYMPHOMA BURKITT-LIKE LYMPHOMA STAGE III
     Dosage: 3.2 MG/M2, CYCLIC (SECOND CYCLE, CUMULATIVE DOSE)
  2. DOXORUBICIN [Concomitant]
     Active Substance: DOXORUBICIN
     Dosage: UNK, CYCLIC (SUBSEQUENT FOUR CYCLES)
  3. RITUXIMAB. [Concomitant]
     Active Substance: RITUXIMAB
     Indication: HIGH GRADE B-CELL LYMPHOMA BURKITT-LIKE LYMPHOMA STAGE III
     Dosage: UNK, CYCLIC (SECOND CYCLE OF CHEMOTHERAPY)
  4. CYCLOPHOSPHAMIDE. [Concomitant]
     Active Substance: CYCLOPHOSPHAMIDE
     Indication: HIGH GRADE B-CELL LYMPHOMA BURKITT-LIKE LYMPHOMA STAGE III
     Dosage: UNK, CYCLIC (SECOND CYCLE OF CHEMOTHERAPY)
  5. RITUXIMAB. [Concomitant]
     Active Substance: RITUXIMAB
     Dosage: UNK, CYCLIC (SUBSEQUENT FOUR CYCLES)
  6. PREDNISONE. [Concomitant]
     Active Substance: PREDNISONE
     Dosage: UNK, CYCLIC (SUBSEQUENT FOUR CYCLES)
  7. DOXORUBICIN [Concomitant]
     Active Substance: DOXORUBICIN
     Indication: HIGH GRADE B-CELL LYMPHOMA BURKITT-LIKE LYMPHOMA STAGE III
     Dosage: UNK, CYCLIC (SECOND CYCLE OF CHEMOTHERAPY)
  8. PREDNISONE. [Concomitant]
     Active Substance: PREDNISONE
     Indication: HIGH GRADE B-CELL LYMPHOMA BURKITT-LIKE LYMPHOMA STAGE III
     Dosage: UNK, CYCLIC (SECOND CYCLE OF CHEMOTHERAPY)
  9. CYCLOPHOSPHAMIDE. [Concomitant]
     Active Substance: CYCLOPHOSPHAMIDE
     Dosage: UNK, CYCLIC (SUBSEQUENT FOUR CYCLES)
  10. ETOPOSIDE. [Concomitant]
     Active Substance: ETOPOSIDE
     Indication: HIGH GRADE B-CELL LYMPHOMA BURKITT-LIKE LYMPHOMA STAGE III
     Dosage: UNK, CYCLIC (SECOND CYCLE OF CHEMOTHERAPY)
  11. ETOPOSIDE. [Concomitant]
     Active Substance: ETOPOSIDE
     Dosage: UNK, CYCLIC (SUBSEQUENT FOUR CYCLES)

REACTIONS (2)
  - Vocal cord paralysis [Recovered/Resolved]
  - Neuropathy peripheral [Recovering/Resolving]
